FAERS Safety Report 9249955 (Version 1)
Quarter: 2013Q2

REPORT INFORMATION
  Report Type: Spontaneous
  Country: HR (occurrence: HR)
  Receive Date: 20130424
  Receipt Date: 20130424
  Transmission Date: 20140414
  Serious: Yes (Other)
  Sender: FDA-Public Use
  Company Number: HR-ROCHE-1217652

PATIENT
  Age: 13 Year
  Sex: Male
  Weight: 40 kg

DRUGS (1)
  1. ROCEPHIN [Suspect]
     Indication: SINUSITIS
     Route: 042
     Dates: start: 20130403, end: 20130403

REACTIONS (2)
  - Erythema [Recovered/Resolved]
  - Rash macular [Recovered/Resolved]
